FAERS Safety Report 6042255-6 (Version None)
Quarter: 2009Q1

REPORT INFORMATION
  Report Type: 
  Country: None (occurrence: None)
  Receive Date: 20090116
  Receipt Date: 20090106
  Transmission Date: 20090719
  Serious: Yes (Other)
  Sender: FDA-Public Use
  Company Number: US-BAXTER-2009BH000268

PATIENT
  Sex: Male

DRUGS (1)
  1. HEPARIN [Suspect]
     Indication: VASCULAR OPERATION
     Route: 065
     Dates: start: 20071024

REACTIONS (6)
  - CONDITION AGGRAVATED [None]
  - DIARRHOEA [None]
  - GASTROINTESTINAL HAEMORRHAGE [None]
  - HEPARIN-INDUCED THROMBOCYTOPENIA [None]
  - NAUSEA [None]
  - VOMITING [None]
